FAERS Safety Report 5792983-2 (Version None)
Quarter: 2008Q2

REPORT INFORMATION
  Report Type: 
  Country: None (occurrence: None)
  Receive Date: 20080627
  Receipt Date: 20080620
  Transmission Date: 20081010
  Serious: Yes (Hospitalization)
  Sender: FDA-Public Use
  Company Number: US-AMGEN-QUU286607

PATIENT
  Sex: Female
  Weight: 85.8 kg

DRUGS (5)
  1. NEULASTA [Suspect]
     Indication: CHEMOTHERAPY
     Route: 058
     Dates: start: 20080508, end: 20080530
  2. TAXOTERE [Suspect]
     Indication: BREAST CANCER
     Dates: start: 20080507, end: 20080529
  3. CYTOXAN [Concomitant]
     Dates: start: 20080507, end: 20080529
  4. SODIUM CHLORIDE [Concomitant]
  5. ALBUTEROL [Concomitant]

REACTIONS (6)
  - CHEST PAIN [None]
  - DYSPNOEA [None]
  - FLUSHING [None]
  - OEDEMA PERIPHERAL [None]
  - PHARYNGEAL OEDEMA [None]
  - URTICARIA [None]
